FAERS Safety Report 5850005-9 (Version None)
Quarter: 2008Q3

REPORT INFORMATION
  Report Type: 
  Country: None (occurrence: None)
  Receive Date: 20080819
  Receipt Date: 20080814
  Transmission Date: 20090109
  Serious: Yes (Other)
  Sender: FDA-Public Use
  Company Number: US-ABBOTT-08P-163-0445068-00

PATIENT
  Sex: Female
  Weight: 80.812 kg

DRUGS (11)
  1. HUMIRA [Suspect]
     Indication: RHEUMATOID ARTHRITIS
     Route: 058
     Dates: start: 20071205, end: 20080326
  2. HUMIRA [Suspect]
     Route: 058
     Dates: start: 20080813
  3. PREDNISONE TAB [Concomitant]
     Indication: RHEUMATOID ARTHRITIS
     Route: 048
     Dates: start: 20070201
  4. METHOTREXATE SODIUM [Concomitant]
     Indication: RHEUMATOID ARTHRITIS
     Route: 048
     Dates: start: 20070219, end: 20071025
  5. METHOTREXATE SODIUM [Concomitant]
     Route: 048
     Dates: start: 20071026, end: 20071126
  6. METHOTREXATE SODIUM [Concomitant]
     Route: 048
     Dates: start: 20071127
  7. FOLIC ACID [Concomitant]
     Indication: VITAMIN SUPPLEMENTATION
     Route: 048
     Dates: start: 20070201, end: 20080407
  8. ESOMEPRAZOLE MAGNESIUM [Concomitant]
     Indication: PROPHYLAXIS AGAINST GASTROINTESTINAL ULCER
     Route: 048
     Dates: start: 20070101, end: 20080407
  9. NAPROXEN [Concomitant]
     Indication: OSTEOARTHRITIS
     Dates: start: 20070101, end: 20080407
  10. AMITRIPTYLINE HCL [Concomitant]
     Indication: INSOMNIA
     Dosage: 20-25 MG QHS
     Route: 048
     Dates: start: 20061201, end: 20070101
  11. NAPROSYN [Concomitant]
     Indication: RHEUMATOID ARTHRITIS
     Route: 048
     Dates: start: 20080801

REACTIONS (9)
  - ABORTION INDUCED [None]
  - ARTHRITIS [None]
  - BLOOD GLUCOSE ABNORMAL [None]
  - FATIGUE [None]
  - FULL BLOOD COUNT ABNORMAL [None]
  - JOINT SWELLING [None]
  - OEDEMA PERIPHERAL [None]
  - PAIN IN EXTREMITY [None]
  - WHITE BLOOD CELL COUNT ABNORMAL [None]
